FAERS Safety Report 10308389 (Version 4)
Quarter: 2014Q3

REPORT INFORMATION
  Report Type: Spontaneous
  Country: NL (occurrence: None)
  Receive Date: 20140714
  Receipt Date: 20140905
  Transmission Date: 20150326
  Serious: Yes (Life-Threatening, Other)
  Sender: FDA-Public Use
  Company Number: LOC-01259

PATIENT
  Age: 73 Year
  Sex: Female

DRUGS (5)
  1. DRUGS AGAINST HIGH BLOOD PRESSURE (DRUGS AGAINST HIGH BLOODD PRESSURE) [Concomitant]
  2. LOCOID [Suspect]
     Active Substance: HYDROCORTISONE BUTYRATE
     Indication: RASH
     Dosage: THRICE DAILY (AS NEEDED)ORAL?ORAL TOPICAL REGIMEN
     Route: 048
  3. ASCAL (ACETYLSALICYLATE CALCIUM) [Concomitant]
  4. METFORMINE (METFORMIN HYDROCHLORIDE) [Concomitant]
  5. DRUGS AGAINST DIABETES (DRUGS AGAINST DIABETES) [Concomitant]

REACTIONS (12)
  - Incorrect route of drug administration [None]
  - Metastases to liver [None]
  - Hyperkeratosis [None]
  - Incorrect drug administration duration [None]
  - Benign neoplasm of skin [None]
  - Neoplasm skin [None]
  - Lymphadenopathy [None]
  - Off label use [None]
  - Intentional product misuse [None]
  - Mood altered [None]
  - Therapeutic response changed [None]
  - Colon cancer metastatic [None]
